FAERS Safety Report 6686355-6 (Version None)
Quarter: 2010Q2

REPORT INFORMATION
  Report Type: 
  Country: None (occurrence: None)
  Receive Date: 20100414
  Receipt Date: 20100309
  Transmission Date: 20101027
  Serious: Yes (Other)
  Sender: FDA-Public Use
  Company Number: CRC-10-044

PATIENT
  Age: 62 Year
  Sex: Male
  Weight: 97.977 kg

DRUGS (5)
  1. METOPROLOL TARTRATE [Suspect]
     Indication: PALPITATIONS
     Dosage: 100MG IN THE MORNING
     Dates: start: 20100101, end: 20100217
  2. METOPROLOL TARTRATE [Suspect]
  3. ALLOPURINOL [Concomitant]
  4. METFORMIN HCL [Concomitant]
  5. FENOFIBRATE [Concomitant]

REACTIONS (2)
  - DRUG INEFFECTIVE [None]
  - HEART RATE IRREGULAR [None]
